FAERS Safety Report 14702500 (Version 1)
Quarter: 2018Q2

REPORT INFORMATION
  Report Type: Spontaneous
  Country: FR (occurrence: FR)
  Receive Date: 20180401
  Receipt Date: 20180401
  Transmission Date: 20180711
  Serious: Yes (Other)
  Sender: FDA-Public Use
  Company Number: FR-MERCK KGAA-2044845

PATIENT
  Age: 39 Year
  Sex: Female

DRUGS (1)
  1. NOVOTHYROX [Suspect]
     Active Substance: LEVOTHYROXINE SODIUM
     Indication: PRODUCT USED FOR UNKNOWN INDICATION

REACTIONS (16)
  - Mood altered [None]
  - Impaired driving ability [None]
  - Nausea [None]
  - Pain in extremity [None]
  - Paraesthesia [None]
  - Fatigue [None]
  - Apathy [None]
  - Lethargy [None]
  - Social problem [None]
  - Loss of personal independence in daily activities [None]
  - Disturbance in attention [None]
  - Crying [None]
  - Blood thyroid stimulating hormone increased [None]
  - Asthenia [None]
  - Muscle atrophy [None]
  - Anxiety [None]

NARRATIVE: CASE EVENT DATE: 20170731
